FAERS Safety Report 5872180-2 (Version None)
Quarter: 2008Q3

REPORT INFORMATION
  Report Type: 
  Country: None (occurrence: None)
  Receive Date: 20080904
  Receipt Date: 20080821
  Transmission Date: 20090109
  Serious: Yes (Hospitalization, Other)
  Sender: FDA-Public Use
  Company Number: PIR# 0808026-A

PATIENT
  Age: 45 Year
  Sex: Female

DRUGS (1)
  1. HEPARIN SODIUM [Suspect]

REACTIONS (9)
  - ACQUIRED MITOCHONDRIAL DNA MUTATION [None]
  - ENTEROCOCCAL BACTERAEMIA [None]
  - GASTRIC HAEMORRHAGE [None]
  - GASTRITIS EROSIVE [None]
  - POLYCYTHAEMIA VERA [None]
  - SEPSIS [None]
  - SPLENOMEGALY [None]
  - SUBCLAVIAN VEIN THROMBOSIS [None]
  - VENOUS THROMBOSIS LIMB [None]
